FAERS Safety Report 8551844-6 (Version None)
Quarter: 2012Q3

REPORT INFORMATION
  Report Type: 
  Country: None (occurrence: None)
  Receive Date: 20120730
  Receipt Date: 20120725
  Transmission Date: 20120928
  Serious: Yes (Other)
  Sender: FDA-Public Use
  Company Number: BR-ABBOTT-11P-020-0857757-00

PATIENT
  Sex: Female
  Weight: 72 kg

DRUGS (3)
  1. HUMIRA [Suspect]
     Indication: PSORIASIS
     Route: 058
     Dates: start: 20110615
  2. FOLIC ACID [Concomitant]
     Indication: PREGNANCY
     Dates: start: 20110916
  3. NATELE VITAMIN [Concomitant]
     Indication: PREGNANCY
     Dates: start: 20110916

REACTIONS (3)
  - ABDOMINAL PAIN [None]
  - VAGINAL HAEMORRHAGE [None]
  - SOMNOLENCE [None]
